FAERS Safety Report 5844740-6 (Version None)
Quarter: 2008Q3

REPORT INFORMATION
  Report Type: 
  Country: None (occurrence: None)
  Receive Date: 20080814
  Receipt Date: 20080801
  Transmission Date: 20090109
  Serious: Yes (Death)
  Sender: FDA-Public Use
  Company Number: JP-JNJFOC-20080800615

PATIENT
  Sex: Female
  Weight: 54 kg

DRUGS (5)
  1. ITRIZOLE [Suspect]
     Indication: PNEUMONIA
     Route: 048
  2. VANCOMYCIN HCL [Suspect]
     Indication: PNEUMONIA
     Route: 042
  3. MODACIN [Concomitant]
     Indication: PNEUMONIA
     Route: 042
  4. MINOCYCLINE HCL [Concomitant]
     Indication: PNEUMONIA
     Route: 042
  5. MEROPEN [Concomitant]
     Indication: PNEUMONIA
     Route: 042

REACTIONS (2)
  - PNEUMONIA [None]
  - RENAL IMPAIRMENT [None]
